FAERS Safety Report 4441355-1 (Version None)
Quarter: 2004Q3

REPORT INFORMATION
  Report Type: 
  Country: None (occurrence: None)
  Receive Date: 20040728
  Receipt Date: 20040325
  Transmission Date: 20050211
  Serious: No
  Sender: FDA-Public Use
  Company Number: USA040363247

PATIENT
  Age: 46 Year
  Sex: Male
  Weight: 66 kg

DRUGS (2)
  1. STRATTERA [Suspect]
     Dosage: 40 MG/1 DAY
     Dates: start: 20040324
  2. LAMISIL (TERBINAFINE HYDROCHLLORIDE) [Concomitant]

REACTIONS (2)
  - MICTURITION URGENCY [None]
  - NAUSEA [None]
